FAERS Safety Report 9240972 (Version 1)
Quarter: 2013Q2

REPORT INFORMATION
  Report Type: Spontaneous
  Country: US (occurrence: None)
  Receive Date: 20130418
  Receipt Date: 20130418
  Transmission Date: 20140414
  Serious: Yes (Other)
  Sender: FDA-Public Use
  Company Number: None

PATIENT
  Age: 72 Year
  Sex: Female

DRUGS (1)
  1. STIVARGA 40MG BAYER [Suspect]
     Indication: COLON CANCER METASTATIC
     Dosage: 160 MG QD PO
     Route: 048
     Dates: start: 20130315

REACTIONS (3)
  - Pain in extremity [None]
  - Gait disturbance [None]
  - Pain in extremity [None]
